FAERS Safety Report 14599943 (Version 1)
Quarter: 2018Q1

REPORT INFORMATION
  Report Type: Spontaneous
  Country: US (occurrence: US)
  Receive Date: 20180305
  Receipt Date: 20180305
  Transmission Date: 20180509
  Serious: No
  Sender: FDA-Public Use
  Company Number: US-ELITE LABORATORIES INC.-2017ELT00009

PATIENT
  Sex: Female
  Weight: 55.33 kg

DRUGS (5)
  1. PHENTERMINE HYDROCHLORIDE. [Suspect]
     Active Substance: PHENTERMINE HYDROCHLORIDE
     Dosage: 0.5 TABLETS, 3X/WEEK
     Route: 048
     Dates: start: 2016
  2. DEPO-PROVERA [Concomitant]
     Active Substance: MEDROXYPROGESTERONE ACETATE
     Dosage: UNK, 3X/MONTH
  3. PHENTERMINE HYDROCHLORIDE. [Suspect]
     Active Substance: PHENTERMINE HYDROCHLORIDE
     Indication: WEIGHT CONTROL
     Dosage: 1 TABLETS, 4X/WEEK
     Route: 048
     Dates: start: 2016, end: 2017
  4. CLONAZEPAM. [Concomitant]
     Active Substance: CLONAZEPAM
     Indication: ANXIETY
     Dosage: 0.5 MG, AS NEEDED
  5. BRINTELLIX [Concomitant]
     Active Substance: VORTIOXETINE HYDROBROMIDE
     Indication: ANXIETY
     Dosage: 20 MG, 1X/DAY

REACTIONS (6)
  - Drug effect decreased [Not Recovered/Not Resolved]
  - Fatigue [Unknown]
  - Dry mouth [Recovered/Resolved]
  - Somnolence [Unknown]
  - Asthenia [Unknown]
  - Gastrointestinal sounds abnormal [Not Recovered/Not Resolved]

NARRATIVE: CASE EVENT DATE: 2016
